FAERS Safety Report 9307696 (Version 1)
Quarter: 2013Q2

REPORT INFORMATION
  Report Type: Spontaneous
  Country: US (occurrence: US)
  Receive Date: 20130524
  Receipt Date: 20130524
  Transmission Date: 20140414
  Serious: No
  Sender: FDA-Public Use
  Company Number: US-BAYER-2013-062031

PATIENT
  Age: 74 Year
  Sex: Male
  Weight: 102.4 kg

DRUGS (6)
  1. ALEVE CAPLET [Suspect]
     Indication: ANALGESIC THERAPY
     Dosage: 1 DF, BID
     Route: 048
     Dates: start: 201208
  2. BAYER ASPIRIN REGIMEN ADULT LOW STRENGTH [Suspect]
     Dosage: 1 DF, BID
     Route: 048
     Dates: start: 1998
  3. METOPROLOL TARTRATE [Concomitant]
  4. LISINOPRIL [Concomitant]
  5. VITAMIN C [Concomitant]
  6. OSTEO BI-FLEX [Concomitant]

REACTIONS (2)
  - Urine protein, quantitative [Not Recovered/Not Resolved]
  - Incorrect drug administration duration [None]
